FAERS Safety Report 14510280 (Version 5)
Quarter: 2020Q1

REPORT INFORMATION
  Report Type: Spontaneous
  Country: SK (occurrence: SK)
  Receive Date: 20180209
  Receipt Date: 20200124
  Transmission Date: 20200409
  Serious: Yes (Other)
  Sender: FDA-Public Use
  Company Number: SK-MYLANLABS-2018M1008089

PATIENT
  Age: 62 Year
  Sex: Male

DRUGS (16)
  1. PACLITAXEL. [Suspect]
     Active Substance: PACLITAXEL
     Dosage: 125 MG/M2, ON DAY 1, 8, 15 EVERY 28 DAYS
     Route: 065
  2. GEMCITABINE. [Suspect]
     Active Substance: GEMCITABINE
     Dosage: 1000 MG/M2, CYCLE
     Route: 041
     Dates: start: 20160727
  3. GEMCITABINE. [Suspect]
     Active Substance: GEMCITABINE
     Indication: PANCREATIC CARCINOMA METASTATIC
     Dosage: 1000 MG/M2, UNK
     Route: 041
     Dates: start: 20160627
  4. PACLITAXEL. [Suspect]
     Active Substance: PACLITAXEL
     Indication: PANCREATIC CARCINOMA METASTATIC
     Dosage: 125 MG/M2, UNK
     Route: 041
     Dates: start: 20160627
  5. ABRAXANE [Suspect]
     Active Substance: PACLITAXEL
     Dosage: 100 MILLIGRAM/SQ. METER, Q2D
     Route: 041
  6. EMTRICITABINE [Suspect]
     Active Substance: EMTRICITABINE
     Dosage: REDUCED DOSE BY 20 AFTER THIRD CYCLE
     Route: 065
  7. PACLITAXEL. [Suspect]
     Active Substance: PACLITAXEL
     Indication: PANCREATIC CARCINOMA
     Dosage: 375 MG/M2, CYCLE
     Route: 065
  8. PACLITAXEL. [Suspect]
     Active Substance: PACLITAXEL
     Dosage: 125 MG/M2, CYCLE (375 MG/M2 DAILY; ON 1., 8., 15 DAY EVERY 28 DAYS)
     Route: 065
     Dates: start: 20160727
  9. GEMCITABINE. [Suspect]
     Active Substance: GEMCITABINE
     Dosage: REDUCED DOSE BY 20% AFTER THIRD CYCLE
     Route: 065
  10. PACLITAXEL. [Suspect]
     Active Substance: PACLITAXEL
     Dosage: REDUCED DOSE BY 20% AFTER SIXTH CYCLE
     Route: 065
  11. ABRAXANE [Suspect]
     Active Substance: PACLITAXEL
     Indication: PANCREATIC CARCINOMA METASTATIC
     Dosage: 125 MILLIGRAM/SQ. METER
     Route: 041
     Dates: start: 20160727
  12. ABRAXANE [Suspect]
     Active Substance: PACLITAXEL
     Dosage: 100 MILLIGRAM/SQ. METER, 28 DAY
     Route: 065
  13. GEMCITABINE. [Suspect]
     Active Substance: GEMCITABINE
     Dosage: 2400 MG/M2, UNK (800)
     Route: 065
  14. GEMCITABINE. [Suspect]
     Active Substance: GEMCITABINE
     Dosage: 3000 MG/M2, CYCLE
     Route: 065
  15. DEXAMETHASONE. [Concomitant]
     Active Substance: DEXAMETHASONE
     Indication: THROMBOCYTOPENIA
     Dosage: UNK
     Route: 065
  16. GEMCITABINE. [Suspect]
     Active Substance: GEMCITABINE
     Dosage: 1000 MG/M2, ON DAY 1, 8, 15 EVERY 28 DAYS
     Route: 065

REACTIONS (15)
  - Pancytopenia [Not Recovered/Not Resolved]
  - Nausea [Recovered/Resolved]
  - Haematotoxicity [Recovered/Resolved]
  - Thrombocytopenia [Recovered/Resolved]
  - Dyspepsia [Recovered/Resolved]
  - Anaemia [Not Recovered/Not Resolved]
  - Vocal cord paresis [Unknown]
  - Fatigue [Recovered/Resolved]
  - Dysphonia [Recovering/Resolving]
  - Gastrointestinal toxicity [Recovered/Resolved]
  - Neutropenia [Not Recovered/Not Resolved]
  - Leukopenia [Not Recovered/Not Resolved]
  - Diabetic neuropathy [Not Recovered/Not Resolved]
  - Musculoskeletal chest pain [Unknown]
  - Vomiting [Recovered/Resolved]

NARRATIVE: CASE EVENT DATE: 201705
